FAERS Safety Report 25347133 (Version 1)
Quarter: 2025Q2

REPORT INFORMATION
  Report Type: Spontaneous
  Country: CN (occurrence: CN)
  Receive Date: 20250522
  Receipt Date: 20250522
  Transmission Date: 20250717
  Serious: Yes (Other)
  Sender: PFIZER
  Company Number: CN-PFIZER INC-PV202500060648

PATIENT
  Age: 64 Year
  Sex: Male

DRUGS (2)
  1. METHYLPREDNISOLONE SODIUM SUCCINATE [Suspect]
     Active Substance: METHYLPREDNISOLONE SODIUM SUCCINATE
     Indication: Vogt-Koyanagi-Harada disease
     Dosage: 1000 MG, 1X/DAY
     Route: 041
     Dates: start: 20250508, end: 20250512
  2. METHYLPREDNISOLONE SODIUM SUCCINATE [Suspect]
     Active Substance: METHYLPREDNISOLONE SODIUM SUCCINATE
     Dosage: 500 MG, 1X/DAY
     Route: 041
     Dates: start: 20250513, end: 20250514

REACTIONS (7)
  - Eyelid oedema [Recovering/Resolving]
  - Erythema of eyelid [Recovering/Resolving]
  - Pruritus [Recovered/Resolved]
  - Lacrimation increased [Unknown]
  - Hypersensitivity [Unknown]
  - Headache [Unknown]
  - Off label use [Unknown]

NARRATIVE: CASE EVENT DATE: 20250508
